FAERS Safety Report 6850666-1 (Version None)
Quarter: 2010Q3

REPORT INFORMATION
  Report Type: 
  Country: None (occurrence: None)
  Receive Date: 20100716
  Receipt Date: 20071018
  Transmission Date: 20110219
  Serious: No
  Sender: FDA-Public Use
  Company Number: US-PFIZER INC-2007089486

PATIENT
  Sex: Female

DRUGS (2)
  1. CHANTIX [Suspect]
     Dates: start: 20071001
  2. AMBIEN [Concomitant]

REACTIONS (4)
  - ABNORMAL DREAMS [None]
  - DYSGEUSIA [None]
  - RESTLESSNESS [None]
  - SLEEP DISORDER [None]
